FAERS Safety Report 4685028-9 (Version None)
Quarter: 2005Q2

REPORT INFORMATION
  Report Type: 
  Country: None (occurrence: None)
  Receive Date: 20050531
  Receipt Date: 20050222
  Transmission Date: 20051028
  Serious: No
  Sender: FDA-Public Use
  Company Number: WAES 0502USA03441

PATIENT
  Age: 67 Year
  Sex: Male
  Weight: 79.8331 kg

DRUGS (8)
  1. ZETIA [Suspect]
     Indication: BLOOD CHOLESTEROL INCREASED
     Dosage: 10 MG/DAILY/PO
     Route: 048
     Dates: start: 20031101, end: 20041216
  2. CIPRO [Concomitant]
  3. HYDRODIURIL [Concomitant]
  4. PRILOSEC [Concomitant]
  5. VIAGRA [Concomitant]
  6. ASPIRIN [Concomitant]
  7. LITHIUM SULFATE [Concomitant]
  8. TRAZODONE HYDROCHLORIDE [Concomitant]

REACTIONS (1)
  - BLOOD CREATINE PHOSPHOKINASE INCREASED [None]
